FAERS Safety Report 7144931-0 (Version None)
Quarter: 2010Q4

REPORT INFORMATION
  Report Type: 
  Country: None (occurrence: None)
  Receive Date: 20101208
  Receipt Date: 20101202
  Transmission Date: 20110411
  Serious: Yes (Death, Hospitalization)
  Sender: FDA-Public Use
  Company Number: JP-CELGENEUS-087-21880-10101343

PATIENT
  Sex: Male
  Weight: 49.2 kg

DRUGS (7)
  1. REVLIMID [Suspect]
     Indication: MULTIPLE MYELOMA
     Route: 048
     Dates: start: 20100817, end: 20100907
  2. DEXAMETHASONE [Suspect]
     Indication: MULTIPLE MYELOMA
     Route: 048
     Dates: start: 20100817, end: 20100819
  3. LENADEX [Suspect]
     Route: 048
     Dates: start: 20100820, end: 20100823
  4. LENADEX [Suspect]
     Route: 048
     Dates: start: 20100824, end: 20100907
  5. BUFFERIN [Concomitant]
     Indication: PROPHYLAXIS
     Route: 048
     Dates: start: 20100817, end: 20100907
  6. SPIRIVA [Concomitant]
     Route: 055
     Dates: start: 20100817, end: 20100907
  7. OMEPRAL [Concomitant]
     Indication: PROPHYLAXIS
     Route: 048
     Dates: start: 20100817, end: 20100907

REACTIONS (3)
  - BRONCHOPNEUMONIA [None]
  - MULTI-ORGAN FAILURE [None]
  - PNEUMOTHORAX [None]
